FAERS Safety Report 6181121-2 (Version None)
Quarter: 2009Q2

REPORT INFORMATION
  Report Type: 
  Country: None (occurrence: None)
  Receive Date: 20090506
  Receipt Date: 20090425
  Transmission Date: 20091009
  Serious: Yes (Other)
  Sender: FDA-Public Use
  Company Number: PHHY2009BR10177

PATIENT
  Age: 84 Year
  Sex: Female

DRUGS (3)
  1. EXFORGE [Suspect]
     Indication: HYPERTENSION
     Dosage: 320/10MG
     Route: 048
     Dates: start: 20081201, end: 20090301
  2. ATENOLOL [Concomitant]
     Dosage: 50 MG, BID
     Route: 048
     Dates: start: 20081201, end: 20090301
  3. LASIX [Concomitant]
     Dosage: UNK
     Route: 048

REACTIONS (7)
  - ABDOMINAL PAIN [None]
  - BREAST OEDEMA [None]
  - GASTRITIS [None]
  - LOCALISED OEDEMA [None]
  - OEDEMA [None]
  - SKIN IRRITATION [None]
  - SKIN OEDEMA [None]
